FAERS Safety Report 14567480 (Version 1)
Quarter: 2018Q1

REPORT INFORMATION
  Report Type: Spontaneous
  Country: CH (occurrence: CH)
  Receive Date: 20180223
  Receipt Date: 20180223
  Transmission Date: 20180509
  Serious: Yes (Hospitalization, Other)
  Sender: FDA-Public Use
  Company Number: CH-PFIZER INC-2018073918

PATIENT
  Age: 54 Year
  Sex: Female

DRUGS (11)
  1. FLUCTINE [Suspect]
     Active Substance: FLUOXETINE HYDROCHLORIDE
     Indication: MENTAL DISORDER
     Dosage: 40 MG, 1X/DAY
     Route: 048
  2. OPSUMIT [Concomitant]
     Active Substance: MACITENTAN
     Dosage: 10 MG, 1X/DAY
     Route: 048
  3. PANTOZOL [Concomitant]
     Active Substance: PANTOPRAZOLE SODIUM
     Dosage: 40 MG, 2X/DAY
     Route: 048
  4. SEROQUEL [Suspect]
     Active Substance: QUETIAPINE FUMARATE
     Dosage: 25 MG, 1X/DAY
     Route: 048
     Dates: end: 20180209
  5. ALDACTONE [Concomitant]
     Active Substance: SPIRONOLACTONE
     Dosage: 50 MG, 1X/DAY
     Route: 048
  6. TEMESTA (LORAZEPAM) [Suspect]
     Active Substance: LORAZEPAM
     Dosage: 1 MG OF UNCLEAR QUANTITY (POSSIBLE INTAKE OF A WHOLE BLISTER)
     Route: 048
     Dates: start: 20180209, end: 20180209
  7. STILNOX CR [Suspect]
     Active Substance: ZOLPIDEM TARTRATE
     Indication: MENTAL DISORDER
     Dosage: 12.5 MG, 1X/DAY
     Route: 048
     Dates: end: 20180209
  8. SEROQUEL [Suspect]
     Active Substance: QUETIAPINE FUMARATE
     Indication: MENTAL DISORDER
     Dosage: 100 MG, 1X/DAY
     Route: 048
     Dates: end: 20180209
  9. MARCOUMAR [Concomitant]
     Active Substance: PHENPROCOUMON
     Dosage: UNK UNK, 1X/DAY
     Route: 048
  10. REVATIO [Concomitant]
     Active Substance: SILDENAFIL CITRATE
     Dosage: 20 MG, 3X/DAY
     Route: 048
  11. SEROQUEL XR [Suspect]
     Active Substance: QUETIAPINE FUMARATE
     Indication: MENTAL DISORDER
     Dosage: 300 MG, 1X/DAY
     Route: 048
     Dates: end: 20180209

REACTIONS (4)
  - Toxicity to various agents [Recovered/Resolved]
  - Altered state of consciousness [Recovered/Resolved]
  - Intentional overdose [Recovered/Resolved]
  - Suicide attempt [Recovered/Resolved]

NARRATIVE: CASE EVENT DATE: 20180209
